FAERS Safety Report 16359759 (Version 1)
Quarter: 2019Q2

REPORT INFORMATION
  Report Type: Spontaneous
  Country: DE (occurrence: DE)
  Receive Date: 20190528
  Receipt Date: 20190528
  Transmission Date: 20190711
  Serious: Yes (Other)
  Sender: FDA-Public Use
  Company Number: DE-AUROBINDO-AUR-APL-2019-029562

PATIENT

DRUGS (6)
  1. CAPECITABINE. [Suspect]
     Active Substance: CAPECITABINE
     Dosage: 4000 MILLIGRAM
     Route: 048
  2. BEVACIZUMAB. [Suspect]
     Active Substance: BEVACIZUMAB
     Indication: COLORECTAL CANCER METASTATIC
     Dosage: 645 MILLIGRAM, 3 WEEK
     Route: 042
     Dates: start: 20160209, end: 20160818
  3. CAPECITABINE. [Suspect]
     Active Substance: CAPECITABINE
     Dosage: 54000 MILLIGRAM/D1-D14, THEN 7-D BREAK
     Route: 048
  4. CAPECITABINE. [Suspect]
     Active Substance: CAPECITABINE
     Dosage: 560000 MILLIGRAM
     Route: 048
  5. OXALIPLATIN. [Suspect]
     Active Substance: OXALIPLATIN
     Indication: COLORECTAL CANCER METASTATIC
     Dosage: UNK
     Route: 065
  6. CAPECITABINE. [Suspect]
     Active Substance: CAPECITABINE
     Indication: COLORECTAL CANCER
     Dosage: 6000 MILLIGRAM, D1-D3
     Route: 048
     Dates: start: 20160209, end: 20160615

REACTIONS (11)
  - Paraesthesia [Recovered/Resolved]
  - Thrombocytopenia [Recovered/Resolved]
  - Iron deficiency [Not Recovered/Not Resolved]
  - Myalgia [Recovered/Resolved]
  - Hypersensitivity [Recovered/Resolved]
  - Febrile neutropenia [Recovering/Resolving]
  - Fatigue [Not Recovered/Not Resolved]
  - Bone pain [Recovered/Resolved]
  - Musculoskeletal pain [Recovered/Resolved]
  - Neutropenia [Recovered/Resolved]
  - Stoma site haemorrhage [Not Recovered/Not Resolved]

NARRATIVE: CASE EVENT DATE: 20160212
